FAERS Safety Report 14410907 (Version 1)
Quarter: 2018Q1

REPORT INFORMATION
  Report Type: Spontaneous
  Country: US (occurrence: US)
  Receive Date: 20180117
  Receipt Date: 20180117
  Transmission Date: 20180509
  Serious: Yes (Death)
  Sender: FDA-Public Use
  Company Number: None

PATIENT
  Age: 88 Year
  Sex: Female

DRUGS (1)
  1. CAPECITABINE 500MG TAB [Suspect]
     Active Substance: CAPECITABINE
     Indication: HEPATIC CANCER
     Dosage: 500 MG 3 MOORNING, 2 EVENING  ORAL??RECENT
     Route: 048
     Dates: start: 20170629

REACTIONS (1)
  - Death [None]

NARRATIVE: CASE EVENT DATE: 20180117
